FAERS Safety Report 5583879-X (Version None)
Quarter: 2008Q1

REPORT INFORMATION
  Report Type: 
  Country: None (occurrence: None)
  Receive Date: 20080102
  Receipt Date: 20080102
  Transmission Date: 20080703
  Serious: Yes (Other)
  Sender: FDA-Public Use
  Company Number: None

PATIENT
  Sex: Female
  Weight: 104.3273 kg

DRUGS (1)
  1. CHANTIX [Suspect]
     Indication: SMOKING CESSATION THERAPY
     Dosage: 0.5MG DAILY X3 DAYS THEN BID X4 DAYS PO : THEN 1 MG BID X 3-6 MOS
     Route: 048
     Dates: start: 20071224, end: 20071224

REACTIONS (2)
  - VERTIGO POSITIONAL [None]
  - VOMITING [None]
